FAERS Safety Report 10072543 (Version 1)
Quarter: 2014Q2

REPORT INFORMATION
  Report Type: Spontaneous
  Country: US (occurrence: US)
  Receive Date: 20140411
  Receipt Date: 20140411
  Transmission Date: 20141212
  Serious: No
  Sender: FDA-Public Use
  Company Number: US-BAYER-2014-053972

PATIENT
  Sex: Female

DRUGS (1)
  1. ALEVE TABLET [Suspect]
     Dosage: UNK
     Route: 048

REACTIONS (4)
  - Nausea [None]
  - Decreased appetite [None]
  - Fatigue [None]
  - Incorrect dose administered [None]
